FAERS Safety Report 9759701 (Version 2)
Quarter: 2013Q4

REPORT INFORMATION
  Report Type: Spontaneous
  Country: US (occurrence: US)
  Receive Date: 20131216
  Receipt Date: 20131216
  Transmission Date: 20140711
  Serious: No
  Sender: FDA-Public Use
  Company Number: US-GILEAD-2010-0028579

PATIENT
  Sex: Female
  Weight: 73.48 kg

DRUGS (5)
  1. LETAIRIS [Suspect]
     Indication: PULMONARY ARTERIAL HYPERTENSION
     Route: 048
     Dates: start: 20100215
  2. REVATIO [Concomitant]
  3. LASIX [Concomitant]
  4. PRAVASTATIN [Concomitant]
  5. POTASSIUM CHLORIDE [Concomitant]

REACTIONS (2)
  - Chest pain [Unknown]
  - Dyspnoea [Unknown]
